FAERS Safety Report 8988384 (Version 1)
Quarter: 2012Q4

REPORT INFORMATION
  Report Type: Spontaneous
  Country: US (occurrence: None)
  Receive Date: 20121218
  Receipt Date: 20121218
  Transmission Date: 20130627
  Serious: Yes (Life-Threatening)
  Sender: FDA-Public Use
  Company Number: DSA_61410_2012

PATIENT

DRUGS (3)
  1. MONO TILDIEM [Suspect]
     Indication: HYPERTENSION
     Route: 048
     Dates: end: 20120626
  2. KARDEGIC [Concomitant]
  3. COAPROVEL [Concomitant]

REACTIONS (14)
  - Hepatic failure [None]
  - Hepatocellular injury [None]
  - General physical health deterioration [None]
  - Delirium [None]
  - Bradycardia [None]
  - Hypothermia [None]
  - Confusional state [None]
  - Anaemia [None]
  - Renal failure acute [None]
  - Lactic acidosis [None]
  - Haemodialysis [None]
  - Overdose [None]
  - Toxicity to various agents [None]
  - Cardiogenic shock [None]
